FAERS Safety Report 25746547 (Version 2)
Quarter: 2025Q3

REPORT INFORMATION
  Report Type: Report from Study
  Country: US (occurrence: US)
  Receive Date: 20250901
  Receipt Date: 20250911
  Transmission Date: 20251021
  Serious: Yes (Other)
  Sender: GILEAD
  Company Number: US-GILEAD-2025-0726211

PATIENT
  Sex: Female

DRUGS (19)
  1. AZTREONAM LYSINE [Suspect]
     Active Substance: AZTREONAM LYSINE
     Indication: Cystic fibrosis lung
     Dosage: 75 MG, TID (INHALE 1 VIAL (75 MG) THREE TIMES DAILY, 28 DAYS ON 28 DAYS OFF)
     Route: 055
  2. VITAMIN C [Concomitant]
     Active Substance: ASCORBIC ACID
  3. COQ10 [ASCORBIC ACID;BETACAROTENE;CUPRIC OXIDE;MANGANESE SULFATE;SELEN [Concomitant]
  4. MINERALS\VITAMINS [Concomitant]
     Active Substance: MINERALS\VITAMINS
  5. SODIUM CHLORIDE [Concomitant]
     Active Substance: SODIUM CHLORIDE
  6. VITAMIN D3 [Concomitant]
     Active Substance: CHOLECALCIFEROL
  7. NYSTATIN [Concomitant]
     Active Substance: NYSTATIN
  8. CREON [Concomitant]
     Active Substance: PANCRELIPASE AMYLASE\PANCRELIPASE LIPASE\PANCRELIPASE PROTEASE
  9. PANTOPRAZOLE SODIUM [Concomitant]
     Active Substance: PANTOPRAZOLE SODIUM
  10. ALBUTEROL SULFATE [Concomitant]
     Active Substance: ALBUTEROL SULFATE
  11. CLARITHROMYCIN [Concomitant]
     Active Substance: CLARITHROMYCIN
  12. MIRALAX [Concomitant]
     Active Substance: POLYETHYLENE GLYCOL 3350
  13. FLOVENT [Concomitant]
     Active Substance: FLUTICASONE PROPIONATE
  14. ALBUTEROL SULFATE [Concomitant]
     Active Substance: ALBUTEROL SULFATE
  15. TOBRAMYCIN [Concomitant]
     Active Substance: TOBRAMYCIN
  16. ZITHROMAX [Concomitant]
     Active Substance: AZITHROMYCIN DIHYDRATE
  17. CLARITHROMYCIN [Concomitant]
     Active Substance: CLARITHROMYCIN
  18. PULMOZYME [Concomitant]
     Active Substance: DORNASE ALFA
  19. TRIKAFTA [Concomitant]
     Active Substance: ELEXACAFTOR\IVACAFTOR\TEZACAFTOR

REACTIONS (3)
  - Infective pulmonary exacerbation of cystic fibrosis [Not Recovered/Not Resolved]
  - Viral infection [Unknown]
  - Illness [Unknown]
